FAERS Safety Report 4339883-2 (Version None)
Quarter: 2004Q2

REPORT INFORMATION
  Report Type: 
  Country: None (occurrence: None)
  Receive Date: 20040416
  Receipt Date: 20040218
  Transmission Date: 20050107
  Serious: Yes (Disabling)
  Sender: FDA-Public Use
  Company Number: 200412214GDDC

PATIENT
  Age: 73 Year
  Sex: Male

DRUGS (6)
  1. TAKEPRON [Suspect]
     Indication: GASTRIC ULCER
     Route: 048
     Dates: start: 20040204, end: 20040209
  2. PENICILLIN G [Suspect]
     Indication: ENDOCARDITIS
     Dosage: DOSE UNIT: UNITS
     Route: 042
     Dates: start: 20040130, end: 20040211
  3. PENICILLIN G [Suspect]
     Indication: SEPSIS
     Dosage: DOSE UNIT: UNITS
     Route: 042
     Dates: start: 20040130, end: 20040211
  4. LASIX [Suspect]
     Indication: OEDEMA DUE TO RENAL DISEASE
     Route: 048
     Dates: start: 20040126, end: 20040209
  5. SELBEX [Concomitant]
     Indication: GASTRIC ULCER
     Route: 048
     Dates: start: 20040124, end: 20040209
  6. PRIMPERAN INJ [Concomitant]
     Indication: NAUSEA
     Route: 048
     Dates: start: 20040124, end: 20040209

REACTIONS (2)
  - HEPATIC ATROPHY [None]
  - HEPATIC FAILURE [None]
